FAERS Safety Report 11753912 (Version 4)
Quarter: 2017Q1

REPORT INFORMATION
  Report Type: Report from Study
  Country: CA (occurrence: CA)
  Receive Date: 20151119
  Receipt Date: 20170119
  Transmission Date: 20170428
  Serious: Yes (Life-Threatening, Hospitalization, Disabling, Other)
  Sender: FDA-Public Use
  Company Number: CA-APOPHARMA USA, INC.-2015AP011354

PATIENT
  Age: 33 Year
  Sex: Female
  Weight: 50 kg

DRUGS (3)
  1. FERRIPROX [Suspect]
     Active Substance: DEFERIPRONE
     Indication: THALASSAEMIA BETA
     Dosage: 24 MG/KG, TID
     Route: 048
     Dates: start: 20150801, end: 20150821
  2. DESFERAL [Concomitant]
     Active Substance: DEFEROXAMINE MESYLATE
     Indication: IRON OVERLOAD
     Dosage: 50 MG/KG, QD
     Route: 042
     Dates: start: 20131230, end: 20150801
  3. FERRIPROX [Suspect]
     Active Substance: DEFERIPRONE
     Indication: IRON OVERLOAD

REACTIONS (17)
  - Complex partial seizures [Unknown]
  - Sinus tachycardia [Recovered/Resolved]
  - Acute kidney injury [Recovered/Resolved]
  - Leukocytosis [Recovered/Resolved]
  - Cardiac aneurysm [Recovered/Resolved]
  - Pneumonia necrotising [Recovered/Resolved with Sequelae]
  - Pharyngeal abscess [Recovered/Resolved with Sequelae]
  - Deep vein thrombosis [Unknown]
  - Tachypnoea [Recovered/Resolved with Sequelae]
  - Mucormycosis [Recovered/Resolved with Sequelae]
  - Agranulocytosis [Recovered/Resolved with Sequelae]
  - Dysgeusia [Recovered/Resolved]
  - Infarction [Recovered/Resolved]
  - Aphasia [Recovered/Resolved]
  - Cerebral haemorrhage [Recovered/Resolved with Sequelae]
  - Staphylococcus test positive [Unknown]
  - Osteomyelitis [Recovered/Resolved with Sequelae]

NARRATIVE: CASE EVENT DATE: 20150808
